FAERS Safety Report 24044133 (Version 1)
Quarter: 2024Q3

REPORT INFORMATION
  Report Type: Spontaneous
  Country: RU (occurrence: RU)
  Receive Date: 20240703
  Receipt Date: 20240703
  Transmission Date: 20241017
  Serious: Yes (Other)
  Sender: ABBVIE
  Company Number: RU-ABBOTT-2024A-1383448

PATIENT
  Sex: Male

DRUGS (1)
  1. CREON [Suspect]
     Active Substance: PANCRELIPASE AMYLASE\PANCRELIPASE LIPASE\PANCRELIPASE PROTEASE
     Indication: Cystic fibrosis
     Dosage: REON 10000
     Route: 048
     Dates: start: 20230831, end: 20230901

REACTIONS (5)
  - Abdominal distension [Not Recovered/Not Resolved]
  - Restlessness [Not Recovered/Not Resolved]
  - Haematochezia [Not Recovered/Not Resolved]
  - Appetite disorder [Not Recovered/Not Resolved]
  - Constipation [Not Recovered/Not Resolved]
